FAERS Safety Report 9701385 (Version 1)
Quarter: 2013Q4

REPORT INFORMATION
  Report Type: Spontaneous
  Country: US (occurrence: US)
  Receive Date: 20131121
  Receipt Date: 20131121
  Transmission Date: 20140711
  Serious: No
  Sender: FDA-Public Use
  Company Number: US-GILEAD-2008-0016650

PATIENT
  Sex: Female

DRUGS (7)
  1. LETAIRIS [Suspect]
     Indication: PULMONARY ARTERIAL HYPERTENSION
     Route: 048
  2. AMBIEN [Concomitant]
  3. FLEXERIL [Concomitant]
  4. GABAPENTIN [Concomitant]
  5. CADUET [Concomitant]
  6. MOTRIN [Concomitant]
  7. PREVACID [Concomitant]

REACTIONS (2)
  - Upper respiratory tract congestion [Recovered/Resolved]
  - Oedema [Recovered/Resolved]
